FAERS Safety Report 23425917 (Version 1)
Quarter: 2024Q1

REPORT INFORMATION
  Report Type: Spontaneous
  Country: US (occurrence: US)
  Receive Date: 20240122
  Receipt Date: 20240122
  Transmission Date: 20240409
  Serious: Yes (Other)
  Sender: FDA-Public Use
  Company Number: US-DRL-USA-LIT/USA/24/0001000

PATIENT
  Age: 47 Year
  Sex: Female

DRUGS (3)
  1. SODIUM NITROPRUSSIDE [Suspect]
     Active Substance: SODIUM NITROPRUSSIDE
     Indication: Hypertensive crisis
  2. CLEVIDIPINE [Suspect]
     Active Substance: CLEVIDIPINE
     Indication: Hypertensive crisis
  3. DOXAZOSIN [Concomitant]
     Active Substance: DOXAZOSIN MESYLATE
     Indication: Phaeochromocytoma

REACTIONS (1)
  - Treatment failure [Unknown]
